FAERS Safety Report 14060578 (Version 2)
Quarter: 2017Q4

REPORT INFORMATION
  Report Type: Report from Study
  Country: BE (occurrence: BE)
  Receive Date: 20171007
  Receipt Date: 20171017
  Transmission Date: 20180321
  Serious: Yes (Hospitalization)
  Sender: FDA-Public Use
  Company Number: BE-B.I. PHARMACEUTICALS,INC./RIDGEFIELD-2017-BI-053645

PATIENT
  Age: 55 Year
  Sex: Female
  Weight: 63 kg

DRUGS (6)
  1. CIRCADIN [Concomitant]
     Active Substance: MELATONIN
     Indication: INSOMNIA
     Route: 048
     Dates: start: 20170801
  2. BLINDED BIBF 1120 [Suspect]
     Active Substance: NINTEDANIB
     Indication: CERVIX CARCINOMA
     Route: 048
     Dates: start: 20170823
  3. MOVICOL [Concomitant]
     Active Substance: POLYETHYLENE GLYCOL 3350\POTASSIUM CHLORIDE\SODIUM BICARBONATE\SODIUM CHLORIDE
     Indication: CONSTIPATION
     Dosage: TOTAL DAILY DOSE: 1 BAG
     Route: 048
     Dates: start: 20170822
  4. PACLITAXEL. [Suspect]
     Active Substance: PACLITAXEL
     Indication: CERVIX CARCINOMA
     Dosage: STRENGTH: 175MG/M2 Q3W
     Route: 042
     Dates: start: 20170822
  5. URICRAN [Concomitant]
     Indication: PROPHYLAXIS
     Route: 048
     Dates: start: 201407
  6. CARBOPLATIN. [Suspect]
     Active Substance: CARBOPLATIN
     Indication: CERVIX CARCINOMA
     Dosage: STRENGTH: 5 AUC Q3W
     Route: 042
     Dates: start: 20170822

REACTIONS (1)
  - Pyrexia [Recovered/Resolved]

NARRATIVE: CASE EVENT DATE: 20170930
